FAERS Safety Report 6415262-9 (Version None)
Quarter: 2009Q4

REPORT INFORMATION
  Report Type: 
  Country: None (occurrence: None)
  Receive Date: 20091022
  Receipt Date: 20091016
  Transmission Date: 20100525
  Serious: Yes (Other)
  Sender: FDA-Public Use
  Company Number: 409963

PATIENT
  Age: 77 Year
  Sex: Male

DRUGS (1)
  1. PACLITAXEL [Suspect]
     Indication: LUNG NEOPLASM MALIGNANT
     Dosage: 6 MG/ML, UNKNOWN, INTRAMUSCULAR
     Route: 030
     Dates: start: 20080214, end: 20080214

REACTIONS (8)
  - ANXIETY [None]
  - BACK PAIN [None]
  - CHEST PAIN [None]
  - DIZZINESS [None]
  - DYSPNOEA [None]
  - FLUSHING [None]
  - NAUSEA [None]
  - NERVOUSNESS [None]
